FAERS Safety Report 13461846 (Version 1)
Quarter: 2017Q2

REPORT INFORMATION
  Report Type: Spontaneous
  Country: US (occurrence: US)
  Receive Date: 20170420
  Receipt Date: 20170420
  Transmission Date: 20170830
  Serious: No
  Sender: FDA-Public Use
  Company Number: US-GLAXOSMITHKLINE-US2017054895

PATIENT
  Age: 81 Year
  Sex: Female

DRUGS (1)
  1. ABREVA [Suspect]
     Active Substance: DOCOSANOL
     Indication: ORAL HERPES
     Dosage: UNK
     Dates: start: 20170317, end: 20170319

REACTIONS (4)
  - Lip dry [Not Recovered/Not Resolved]
  - Oral mucosal erythema [Recovering/Resolving]
  - Lip swelling [Not Recovered/Not Resolved]
  - Lip exfoliation [Not Recovered/Not Resolved]
